FAERS Safety Report 21833909 (Version 2)
Quarter: 2023Q1

REPORT INFORMATION
  Report Type: Report from Study
  Country: US (occurrence: US)
  Receive Date: 20230108
  Receipt Date: 20230328
  Transmission Date: 20230417
  Serious: No
  Sender: FDA-Public Use
  Company Number: US-ABBVIE-4206440

PATIENT
  Weight: 52.163 kg

DRUGS (10)
  1. HUMIRA [Suspect]
     Active Substance: ADALIMUMAB
     Indication: Crohn^s disease
     Route: 058
     Dates: start: 202207
  2. HUMIRA [Suspect]
     Active Substance: ADALIMUMAB
     Route: 058
     Dates: end: 202207
  3. PREDNISONE [Concomitant]
     Active Substance: PREDNISONE
     Indication: Muscle disorder
  4. ASPIRIN [Concomitant]
     Active Substance: ASPIRIN
     Indication: Cerebrovascular accident
  5. BUMETANIDE [Concomitant]
     Active Substance: BUMETANIDE
     Indication: Swelling
  6. HYDRALAZINE [Concomitant]
     Active Substance: HYDRALAZINE HYDROCHLORIDE
     Indication: Hypertension
  7. CALTRATE [Concomitant]
     Active Substance: CALCIUM CARBONATE
     Indication: Mineral supplementation
  8. FAMOTIDINE [Concomitant]
     Active Substance: FAMOTIDINE
     Indication: Hypertension
  9. DONEPEZIL [Concomitant]
     Active Substance: DONEPEZIL
     Indication: Memory impairment
  10. PENTASA [Concomitant]
     Active Substance: MESALAMINE
     Indication: Crohn^s disease

REACTIONS (3)
  - Peripheral swelling [Not Recovered/Not Resolved]
  - Diarrhoea [Not Recovered/Not Resolved]
  - Cyanosis [Unknown]
